FAERS Safety Report 13112166 (Version 1)
Quarter: 2017Q1

REPORT INFORMATION
  Report Type: Spontaneous
  Country: FR (occurrence: FR)
  Receive Date: 20170113
  Receipt Date: 20170113
  Transmission Date: 20170428
  Serious: Yes (Death, Hospitalization, Other)
  Sender: FDA-Public Use
  Company Number: FR-BRISTOL-MYERS SQUIBB COMPANY-BMS-2017-000788

PATIENT
  Age: 61 Year
  Sex: Male

DRUGS (1)
  1. COUMADINE [Suspect]
     Active Substance: WARFARIN SODIUM
     Indication: PRODUCT USED FOR UNKNOWN INDICATION
     Dosage: UNK
     Route: 048
     Dates: end: 20140106

REACTIONS (8)
  - Fall [Unknown]
  - Left ventricular failure [Unknown]
  - Embolism [Unknown]
  - Abdominal cavity drainage [Unknown]
  - Respiratory distress [Fatal]
  - Endocarditis [Unknown]
  - Ascites [Unknown]
  - Intracranial haematoma [Not Recovered/Not Resolved]

NARRATIVE: CASE EVENT DATE: 20140103
